FAERS Safety Report 9799552 (Version 2)
Quarter: 2015Q3

REPORT INFORMATION
  Report Type: Spontaneous
  Country: US (occurrence: US)
  Receive Date: 20140106
  Receipt Date: 20150806
  Transmission Date: 20151125
  Serious: No
  Sender: FDA-Public Use
  Company Number: US-GILEAD-2010-0030239

PATIENT
  Age: 63 Year
  Sex: Male
  Weight: 49.44 kg

DRUGS (19)
  1. HYDROCODONE BITARTRATE AND ACETAMINOPHEN [Concomitant]
     Active Substance: ACETAMINOPHEN\HYDROCODONE BITARTRATE
  2. METOPROLOL [Concomitant]
     Active Substance: METOPROLOL
  3. LEVEMIR [Concomitant]
     Active Substance: INSULIN DETEMIR
  4. ASA [Concomitant]
     Active Substance: ASPIRIN
  5. WARFARIN [Concomitant]
     Active Substance: WARFARIN
  6. XANAX XR [Concomitant]
     Active Substance: ALPRAZOLAM
  7. SERTRALINE [Concomitant]
     Active Substance: SERTRALINE HYDROCHLORIDE
  8. LETAIRIS [Suspect]
     Active Substance: AMBRISENTAN
     Indication: PULMONARY ARTERIAL HYPERTENSION
     Route: 048
     Dates: start: 20100320
  9. LIPITOR [Concomitant]
     Active Substance: ATORVASTATIN CALCIUM
  10. RANITIDINE [Concomitant]
     Active Substance: RANITIDINE\RANITIDINE HYDROCHLORIDE
  11. NOVOLOG [Concomitant]
     Active Substance: INSULIN ASPART
  12. ADVAIR HFA [Concomitant]
     Active Substance: FLUTICASONE PROPIONATE\SALMETEROL XINAFOATE
  13. SPIRONOLACTONE. [Concomitant]
     Active Substance: SPIRONOLACTONE
  14. ALLOPURINOL. [Concomitant]
     Active Substance: ALLOPURINOL
  15. TORSEMIDE. [Concomitant]
     Active Substance: TORSEMIDE
  16. METOLAZONE. [Concomitant]
     Active Substance: METOLAZONE
  17. SPIRIVA [Concomitant]
     Active Substance: TIOTROPIUM BROMIDE MONOHYDRATE
  18. MUCINEX [Concomitant]
     Active Substance: GUAIFENESIN
  19. ALPRAZOLAM. [Concomitant]
     Active Substance: ALPRAZOLAM

REACTIONS (1)
  - Swelling [Not Recovered/Not Resolved]

NARRATIVE: CASE EVENT DATE: 20100609
